FAERS Safety Report 16078288 (Version 2)
Quarter: 2019Q2

REPORT INFORMATION
  Report Type: Report from Study
  Country: US (occurrence: US)
  Receive Date: 20190315
  Receipt Date: 20190620
  Transmission Date: 20190711
  Serious: No
  Sender: FDA-Public Use
  Company Number: PHEH2019US010935

PATIENT
  Sex: Female

DRUGS (1)
  1. GILENYA [Suspect]
     Active Substance: FINGOLIMOD HYDROCHLORIDE
     Indication: MULTIPLE SCLEROSIS
     Dosage: 0.5 MG, QD
     Route: 048

REACTIONS (7)
  - Hypoaesthesia [Unknown]
  - Tremor [Unknown]
  - Tongue discomfort [Unknown]
  - Vision blurred [Unknown]
  - Dysarthria [Unknown]
  - Oropharyngeal discomfort [Unknown]
  - Trigeminal neuralgia [Unknown]
